FAERS Safety Report 18977721 (Version 1)
Quarter: 2021Q1

REPORT INFORMATION
  Report Type: Spontaneous
  Country: DE (occurrence: DE)
  Receive Date: 20210306
  Receipt Date: 20210306
  Transmission Date: 20210420
  Serious: Yes (Hospitalization, Other)
  Sender: FDA-Public Use
  Company Number: NVSC2021DE048596

PATIENT
  Sex: Male
  Weight: 78 kg

DRUGS (5)
  1. HYRIMOZ [Suspect]
     Active Substance: ADALIMUMAB-ADAZ
     Indication: CROHN^S DISEASE
     Dosage: 40 MG
     Route: 065
     Dates: start: 20190411
  2. ELIQUIS [Concomitant]
     Active Substance: APIXABAN
     Indication: PULMONARY EMBOLISM
     Dosage: 5 MG, BID
     Route: 065
     Dates: start: 2018
  3. HYRIMOZ [Suspect]
     Active Substance: ADALIMUMAB-ADAZ
     Indication: COLITIS ULCERATIVE
     Dosage: 40 MG
     Route: 065
     Dates: start: 20210116
  4. PENTASA [Suspect]
     Active Substance: MESALAMINE
     Indication: CROHN^S DISEASE
     Dosage: 2 MG, QD
     Route: 065
     Dates: start: 2017
  5. ENTOCORT [Suspect]
     Active Substance: BUDESONIDE
     Indication: CROHN^S DISEASE
     Dosage: 2 MG, QD
     Route: 054

REACTIONS (1)
  - Cytomegalovirus colitis [Unknown]

NARRATIVE: CASE EVENT DATE: 20210128
